FAERS Safety Report 4970551-X (Version None)
Quarter: 2006Q2

REPORT INFORMATION
  Report Type: 
  Country: None (occurrence: None)
  Receive Date: 20060412
  Receipt Date: 20050713
  Transmission Date: 20061013
  Serious: Yes (Hospitalization, Other)
  Sender: FDA-Public Use
  Company Number: US-MERCK-0507USA01738

PATIENT
  Age: 47 Year
  Sex: Female
  Weight: 70 kg

DRUGS (1)
  1. VIOXX [Suspect]
     Indication: ARTHRITIS
     Route: 048
     Dates: start: 20000101, end: 20010601

REACTIONS (24)
  - APHAGIA [None]
  - ASTHENIA [None]
  - CEREBRAL ISCHAEMIA [None]
  - CEREBROVASCULAR ACCIDENT [None]
  - CONVULSION [None]
  - COORDINATION ABNORMAL [None]
  - DEHYDRATION [None]
  - DEPRESSED LEVEL OF CONSCIOUSNESS [None]
  - DYSPNOEA [None]
  - GASTROENTERITIS [None]
  - HEADACHE [None]
  - HEPATITIS A [None]
  - HYPERCOAGULATION [None]
  - MOVEMENT DISORDER [None]
  - NON-CARDIAC CHEST PAIN [None]
  - PANCREATITIS [None]
  - QUADRIPARESIS [None]
  - SINUSITIS [None]
  - STATUS EPILEPTICUS [None]
  - STRESS [None]
  - TREMOR [None]
  - URINARY RETENTION [None]
  - URINARY TRACT INFECTION [None]
  - VOMITING [None]
